FAERS Safety Report 9961836 (Version 2)
Quarter: 2014Q1

REPORT INFORMATION
  Report Type: Spontaneous
  Country: PR (occurrence: PR)
  Receive Date: 20140305
  Receipt Date: 20140305
  Transmission Date: 20141002
  Serious: No
  Sender: FDA-Public Use
  Company Number: PR-ABBVIE-12P-131-1019743-00

PATIENT
  Sex: Female
  Weight: 95.34 kg

DRUGS (7)
  1. HUMIRA [Suspect]
     Indication: RHEUMATOID ARTHRITIS
     Route: 058
     Dates: start: 2012, end: 2013
  2. METHOTREXATE [Concomitant]
     Indication: RHEUMATOID ARTHRITIS
     Route: 048
  3. FOLIC ACID [Concomitant]
     Indication: RHEUMATOID ARTHRITIS
     Route: 048
  4. PROZAC [Concomitant]
     Indication: DEPRESSION
     Route: 048
  5. CLONAZEPAM [Concomitant]
     Indication: ANXIETY
     Route: 048
  6. SEROQUEL [Concomitant]
     Indication: DEPRESSION
     Route: 048
  7. LASIX [Concomitant]
     Indication: HYPERTENSION
     Route: 048

REACTIONS (3)
  - Pain in extremity [Unknown]
  - Pain in extremity [Recovered/Resolved]
  - Drug ineffective [Recovered/Resolved]
